FAERS Safety Report 24429810 (Version 1)
Quarter: 2024Q4

REPORT INFORMATION
  Report Type: Spontaneous
  Country: US (occurrence: US)
  Receive Date: 20241012
  Receipt Date: 20241012
  Transmission Date: 20250115
  Serious: No
  Sender: SANOFI AVENTIS
  Company Number: US-SA-2024SA285392

PATIENT
  Age: 9 Year
  Sex: Male

DRUGS (2)
  1. ALPROLIX [Suspect]
     Active Substance: EFTRENONACOG ALFA
     Indication: Factor IX deficiency
     Dosage: 2500 UNITS (2250-2750) SLOW IV PUSH EVERY 7 DAYS AND EVERY 24 HOURS AS NEEDED
     Route: 042
     Dates: start: 201503
  2. ALPROLIX [Suspect]
     Active Substance: EFTRENONACOG ALFA
     Indication: Factor IX deficiency
     Dosage: 2500 UNITS (2250-2750) SLOW IV PUSH EVERY 7 DAYS AND EVERY 24 HOURS AS NEEDED
     Route: 042
     Dates: start: 201503

REACTIONS (1)
  - Haemorrhage [Recovered/Resolved]
